FAERS Safety Report 7262900-7 (Version None)
Quarter: 2011Q1

REPORT INFORMATION
  Report Type: 
  Country: None (occurrence: None)
  Receive Date: 20110130
  Receipt Date: 20100907
  Transmission Date: 20110831
  Serious: Yes (Hospitalization)
  Sender: FDA-Public Use
  Company Number: US-ABBOTT-10P-163-0668754-00

PATIENT
  Sex: Female
  Weight: 109.41 kg

DRUGS (2)
  1. HUMIRA [Suspect]
     Dates: start: 20100901
  2. HUMIRA [Suspect]
     Indication: PRODUCT USED FOR UNKNOWN INDICATION
     Dates: start: 20090101, end: 20100901

REACTIONS (2)
  - DIARRHOEA [None]
  - DEHYDRATION [None]
